FAERS Safety Report 4918522-3 (Version None)
Quarter: 2006Q1

REPORT INFORMATION
  Report Type: 
  Country: None (occurrence: None)
  Receive Date: 20060221
  Receipt Date: 20060221
  Transmission Date: 20060701
  Serious: Yes (Life-Threatening, Disabling)
  Sender: FDA-Public Use
  Company Number: None

PATIENT
  Sex: Male
  Weight: 8.1647 kg

DRUGS (1)
  1. ORAJEL TEETHING SWABS BENZOCAINE 7.5% DEL PHARMAEUTICALS [Suspect]
     Indication: TEETHING
     Dosage: CUT END OF SWAB AND USE AS NEEDED BUCCAL
     Route: 002
     Dates: start: 20051115, end: 20051115

REACTIONS (2)
  - CARDIO-RESPIRATORY ARREST [None]
  - PHARMACEUTICAL PRODUCT COMPLAINT [None]
